FAERS Safety Report 13021945 (Version 3)
Quarter: 2016Q4

REPORT INFORMATION
  Report Type: Report from Study
  Country: US (occurrence: US)
  Receive Date: 20161213
  Receipt Date: 20161219
  Transmission Date: 20170207
  Serious: No
  Sender: FDA-Public Use
  Company Number: US-AMGEN-USASL2016174259

PATIENT
  Age: 22 Year
  Sex: Female

DRUGS (1)
  1. ENBREL [Suspect]
     Active Substance: ETANERCEPT
     Indication: ANKYLOSING SPONDYLITIS
     Dosage: 50 MG, QWK
     Route: 065
     Dates: start: 20161201

REACTIONS (9)
  - Oropharyngeal pain [Unknown]
  - Off label use [Unknown]
  - Malaise [Unknown]
  - Peripheral swelling [Recovered/Resolved]
  - Rash [Not Recovered/Not Resolved]
  - Cough [Unknown]
  - Joint swelling [Unknown]
  - Skin swelling [Unknown]
  - Urticaria [Unknown]

NARRATIVE: CASE EVENT DATE: 2016
